APPROVED DRUG PRODUCT: CHILDREN'S ADVIL
Active Ingredient: IBUPROFEN
Strength: 100MG/5ML
Dosage Form/Route: SUSPENSION;ORAL
Application: N019833 | Product #002
Applicant: HALEON US HOLDINGS LLC
Approved: Sep 19, 1989 | RLD: No | RS: No | Type: DISCN